FAERS Safety Report 9263974 (Version 4)
Quarter: 2014Q2

REPORT INFORMATION
  Report Type: Spontaneous
  Country: JP (occurrence: JP)
  Receive Date: 20130430
  Receipt Date: 20140520
  Transmission Date: 20141212
  Serious: Yes (Hospitalization, Congenital Anomaly)
  Sender: FDA-Public Use
  Company Number: JP-VIIV HEALTHCARE LIMITED-B0887134A

PATIENT
  Age: 0 Day
  Sex: Male
  Weight: 2.54 kg

DRUGS (10)
  1. COMBIVIR [Suspect]
     Dosage: 1IUAX TWICE PER DAY
     Route: 064
     Dates: start: 20110224, end: 20120209
  2. KALETRA [Suspect]
     Dosage: 2IUAX TWICE PER DAY
     Route: 064
     Dates: start: 20110224, end: 20120209
  3. SEFMAZON [Suspect]
     Dosage: 1G TWICE PER DAY
     Route: 064
     Dates: start: 20120209, end: 20120210
  4. OXYTOCIN [Suspect]
     Indication: UTERINE CONTRACTIONS DURING PREGNANCY
     Dosage: 5IU PER DAY
     Route: 064
     Dates: start: 20120209, end: 20120210
  5. MORPHINE HYDROCHLORIDE [Suspect]
     Indication: ANAESTHESIA PROCEDURE
     Dosage: 10MG PER DAY
     Route: 064
     Dates: start: 20120209, end: 20120209
  6. RETROVIR [Suspect]
     Dosage: 400MG PER DAY
     Route: 064
     Dates: start: 20120209, end: 20120209
  7. NEO-MINOPHAGEN-C [Suspect]
     Indication: LIVER DISORDER
     Dosage: 40ML PER DAY
     Route: 064
     Dates: start: 20120209, end: 20120210
  8. CABASER [Suspect]
     Dosage: 1MG PER DAY
     Route: 064
     Dates: start: 20120209, end: 20120209
  9. RETROVIR [Suspect]
     Indication: PROPHYLAXIS AGAINST HIV INFECTION
     Dosage: .5ML FOUR TIMES PER DAY
     Route: 048
     Dates: start: 20120209, end: 20120322
  10. GLYCYRON [Suspect]
     Indication: LIVER DISORDER
     Route: 064
     Dates: start: 20120203, end: 20120209

REACTIONS (2)
  - Polydactyly [Recovered/Resolved]
  - Foetal exposure during pregnancy [Unknown]
